FAERS Safety Report 4281041-4 (Version None)
Quarter: 2004Q1

REPORT INFORMATION
  Report Type: 
  Country: None (occurrence: None)
  Receive Date: 20040129
  Receipt Date: 20031002
  Transmission Date: 20041129
  Serious: Yes (Hospitalization)
  Sender: FDA-Public Use
  Company Number: US-BRISTOL-MYERS SQUIBB COMPANY-12400172

PATIENT
  Age: 69 Year
  Sex: Male
  Weight: 96 kg

DRUGS (7)
  1. PLATINOL [Suspect]
     Indication: SMALL CELL LUNG CANCER STAGE UNSPECIFIED
     Route: 042
     Dates: start: 20030929, end: 20031001
  2. ZOFRAN [Concomitant]
     Indication: PREMEDICATION
     Route: 042
     Dates: start: 20030929, end: 20031001
  3. DECADRON [Concomitant]
     Indication: PREMEDICATION
     Route: 042
     Dates: start: 20030929, end: 20031001
  4. LASIX [Concomitant]
  5. MANNITOL [Concomitant]
     Route: 042
  6. COMBIVENT [Concomitant]
     Route: 055
  7. PREDNISONE [Concomitant]
     Route: 048

REACTIONS (4)
  - ACCIDENTAL OVERDOSE [None]
  - BLOOD CREATININE INCREASED [None]
  - HYPOACUSIS [None]
  - VOMITING [None]
